FAERS Safety Report 7474945-2 (Version None)
Quarter: 2011Q1

REPORT INFORMATION
  Report Type: 
  Country: None (occurrence: None)
  Receive Date: 20110302
  Receipt Date: 20101015
  Transmission Date: 20110831
  Serious: Yes (Other)
  Sender: FDA-Public Use
  Company Number: 163-21880-10091917

PATIENT
  Age: 73 Year
  Sex: Male

DRUGS (2)
  1. REVLIMID [Suspect]
     Indication: MULTIPLE MYELOMA
     Dosage: 10 MG, QD X21D, PO; 10 MG, QD X 21D, PO
     Route: 048
     Dates: start: 20100909
  2. REVLIMID [Suspect]
     Indication: MULTIPLE MYELOMA
     Dosage: 10 MG, QD X21D, PO; 10 MG, QD X 21D, PO
     Route: 048
     Dates: start: 20100401, end: 20100901

REACTIONS (1)
  - INTESTINAL OBSTRUCTION [None]
